FAERS Safety Report 8483789-4 (Version None)
Quarter: 2012Q3

REPORT INFORMATION
  Report Type: 
  Country: None (occurrence: None)
  Receive Date: 20120703
  Receipt Date: 20120625
  Transmission Date: 20120928
  Serious: No
  Sender: FDA-Public Use
  Company Number: US-BIOGENIDEC-2012BI022494

PATIENT
  Age: 62 Year
  Sex: Female

DRUGS (4)
  1. TYSABRI [Suspect]
     Route: 042
     Dates: start: 20120326
  2. TYSABRI [Suspect]
     Indication: MULTIPLE SCLEROSIS
     Route: 042
     Dates: start: 20090507, end: 20110421
  3. TYSABRI [Suspect]
     Route: 042
     Dates: start: 20110615, end: 20110615
  4. AVONEX [Concomitant]
     Indication: MULTIPLE SCLEROSIS
     Route: 030
     Dates: start: 19961001

REACTIONS (1)
  - MULTIPLE SCLEROSIS RELAPSE [None]
